FAERS Safety Report 9131492 (Version 1)
Quarter: 2013Q1

REPORT INFORMATION
  Report Type: Spontaneous
  Country: US (occurrence: US)
  Receive Date: 20130301
  Receipt Date: 20130301
  Transmission Date: 20140127
  Serious: No
  Sender: FDA-Public Use
  Company Number: US-MYLANLABS-2012S1006653

PATIENT
  Age: 14 Year
  Sex: Male

DRUGS (5)
  1. AMNESTEEM CAPSULES [Suspect]
     Indication: ACNE CYSTIC
     Route: 048
     Dates: start: 201202, end: 201203
  2. AMNESTEEM CAPSULES [Suspect]
     Indication: ACNE CYSTIC
     Route: 048
     Dates: start: 201203
  3. NOVOLOG [Concomitant]
  4. LEVOTHYROXINE [Concomitant]
  5. DESMOPRESSIN [Concomitant]

REACTIONS (3)
  - Nail bed infection [Unknown]
  - Paronychia [Unknown]
  - Mood swings [Recovered/Resolved]
